FAERS Safety Report 24889473 (Version 3)
Quarter: 2025Q3

REPORT INFORMATION
  Report Type: Spontaneous
  Country: JP (occurrence: JP)
  Receive Date: 20250127
  Receipt Date: 20250724
  Transmission Date: 20251021
  Serious: Yes (Hospitalization)
  Sender: PFIZER
  Company Number: JP-PFIZER INC-PV202500009201

PATIENT
  Age: 83 Year
  Sex: Male
  Weight: 41.7 kg

DRUGS (14)
  1. TAFAMIDIS [Suspect]
     Active Substance: TAFAMIDIS
     Indication: Cardiac amyloidosis
     Route: 048
     Dates: start: 20250115
  2. AZILSARTAN KAMEDOXOMIL [Concomitant]
     Active Substance: AZILSARTAN KAMEDOXOMIL
     Indication: Hypertension
     Dosage: 20 MG, 1X/DAY, AFTER DINNER
  3. ASPIRIN [Concomitant]
     Active Substance: ASPIRIN
     Indication: Percutaneous coronary intervention
     Dosage: 100 MG, 1X/DAY, AFTER BREAKFAST
  4. PRASUGREL HYDROCHLORIDE [Concomitant]
     Active Substance: PRASUGREL HYDROCHLORIDE
     Indication: Percutaneous coronary intervention
     Dosage: 3.75 MG, 1X/DAY, AFTER BREAKFAST
  5. ESZOPICLONE [Concomitant]
     Active Substance: ESZOPICLONE
     Indication: Insomnia
     Dosage: 1 MG, 1X/DAY, BEFORE BEDTIME
  6. FEBUXOSTAT [Concomitant]
     Active Substance: FEBUXOSTAT
     Indication: Hyperuricaemia
     Dosage: 5 MG (10X0.5), 1X/DAY, AFTER BREAKFAST
  7. LOKELMA [SODIUM ZIRCONIUM CYCLOSILICATE HYDRATE] [Concomitant]
     Indication: Hyperkalaemia
     Dosage: 5 G, 1X/DAY, AFTER DINNER (NON-DIALYSIS DAY)
  8. MIYA-BM [Concomitant]
     Active Substance: CLOSTRIDIUM BUTYRICUM SPORES STRAIN M-55
     Indication: Gastrointestinal disorder
     Dosage: 1 TABLET, 3X/DAY, AFTER EVERY MEAL
  9. NIFEDIPINE [Concomitant]
     Active Substance: NIFEDIPINE
     Indication: Hypertension
     Dosage: 40 MG (20X2),  1X/DAY, AFTER DINNER
  10. PITAVASTATIN CALCIUM [Concomitant]
     Active Substance: PITAVASTATIN CALCIUM
     Indication: Hyperlipidaemia
     Dosage: 1 MG, 1X/DAY, AFTER BREAKFAST
  11. POLAPREZINC [Concomitant]
     Active Substance: POLAPREZINC
     Indication: Gastric ulcer
     Dosage: 75 MG, 2X/DAY, AFTER BREAKFAST AND DINNER
  12. CALCIUM CARBONATE [Concomitant]
     Active Substance: CALCIUM CARBONATE
     Indication: Blood calcium decreased
     Dosage: 1000 MG (500X2), 3X/DAY, AFTER EVERY MEAL
  13. FERRIC CITRATE ANHYDROUS [Concomitant]
     Active Substance: FERRIC CITRATE ANHYDROUS
     Indication: Iron deficiency anaemia
     Dosage: 250 MG, 3X/DAY, AFTER EVERY MEAL
  14. VONOPRAZAN FUMARATE [Concomitant]
     Active Substance: VONOPRAZAN FUMARATE
     Indication: Gastric ulcer
     Dosage: 20 MG (10X2), 1X/DAY, AFTER BREAKFAST

REACTIONS (1)
  - Lacunar infarction [Recovering/Resolving]

NARRATIVE: CASE EVENT DATE: 20250121
